FAERS Safety Report 20143788 (Version 1)
Quarter: 2021Q4

REPORT INFORMATION
  Report Type: Spontaneous
  Country: US (occurrence: US)
  Receive Date: 20211203
  Receipt Date: 20211203
  Transmission Date: 20220303
  Serious: Yes (Other)
  Sender: FDA-Public Use
  Company Number: US-GLAXOSMITHKLINE-US2021GSK248546

PATIENT
  Sex: Male

DRUGS (21)
  1. ZANTAC [Suspect]
     Active Substance: RANITIDINE HYDROCHLORIDE
     Indication: Dyspepsia
     Dosage: 300 MG, QD
     Route: 065
     Dates: start: 200901, end: 201901
  2. ZANTAC [Suspect]
     Active Substance: RANITIDINE HYDROCHLORIDE
     Dosage: 150 MG, 2-4 TIMES A DAY
     Route: 065
     Dates: start: 200901, end: 201901
  3. ZANTAC [Suspect]
     Active Substance: RANITIDINE HYDROCHLORIDE
     Dosage: 150 MG, 7 DAYS A WEEK
     Route: 065
     Dates: start: 200901, end: 201901
  4. ZANTAC [Suspect]
     Active Substance: RANITIDINE HYDROCHLORIDE
     Indication: Dyspepsia
     Dosage: 300 MG, QD
     Route: 065
     Dates: start: 200901, end: 201901
  5. ZANTAC [Suspect]
     Active Substance: RANITIDINE HYDROCHLORIDE
     Dosage: 150 MG, 2-4 TIMES A DAY
     Route: 065
     Dates: start: 200901, end: 201901
  6. ZANTAC [Suspect]
     Active Substance: RANITIDINE HYDROCHLORIDE
     Dosage: 150 MG,  7 DAYS A WEEK
     Route: 065
     Dates: start: 200901, end: 201901
  7. RANITIDINE HYDROCHLORIDE [Suspect]
     Active Substance: RANITIDINE HYDROCHLORIDE
     Indication: Dyspepsia
     Dosage: 300 MG, QD
     Route: 065
     Dates: start: 200901, end: 201901
  8. RANITIDINE HYDROCHLORIDE [Suspect]
     Active Substance: RANITIDINE HYDROCHLORIDE
     Dosage: 150 MG, 2-4 TIMES A DAY
     Route: 065
     Dates: start: 200901, end: 201901
  9. RANITIDINE HYDROCHLORIDE [Suspect]
     Active Substance: RANITIDINE HYDROCHLORIDE
     Dosage: 150 MG, 7 DAYS A WEEK
     Route: 065
     Dates: start: 200901, end: 201901
  10. RANITIDINE HYDROCHLORIDE [Suspect]
     Active Substance: RANITIDINE HYDROCHLORIDE
     Indication: Dyspepsia
     Dosage: 300 MG, QD
     Route: 065
     Dates: start: 200901, end: 201901
  11. RANITIDINE HYDROCHLORIDE [Suspect]
     Active Substance: RANITIDINE HYDROCHLORIDE
     Dosage: 150 MG, 2-4 TIMES A DAY
     Route: 065
     Dates: start: 200901, end: 201901
  12. RANITIDINE HYDROCHLORIDE [Suspect]
     Active Substance: RANITIDINE HYDROCHLORIDE
     Dosage: 150 MG, 7 DAYS A WEEK
     Route: 065
     Dates: start: 200901, end: 201901
  13. ZANTAC [Suspect]
     Active Substance: RANITIDINE HYDROCHLORIDE
     Indication: Dyspepsia
     Dosage: 300 MG, QD
     Route: 065
     Dates: start: 200901, end: 201901
  14. ZANTAC [Suspect]
     Active Substance: RANITIDINE HYDROCHLORIDE
     Dosage: 150 MG, 2-4 TIMES A DAY
     Route: 065
     Dates: start: 200901, end: 201901
  15. ZANTAC [Suspect]
     Active Substance: RANITIDINE HYDROCHLORIDE
     Dosage: 150 MG, 7 DAYS A WEEK
     Route: 065
     Dates: start: 200901, end: 201901
  16. RANITIDINE [Suspect]
     Active Substance: RANITIDINE
     Indication: Dyspepsia
     Dosage: 300 MG, QD
     Route: 065
     Dates: start: 200901, end: 201901
  17. RANITIDINE [Suspect]
     Active Substance: RANITIDINE
     Dosage: 150 MG, 2-4 TIMES A DAY
     Route: 065
     Dates: start: 200901, end: 201901
  18. RANITIDINE [Suspect]
     Active Substance: RANITIDINE
     Dosage: 150 MG, 7 DAYS A WEEK
     Route: 065
     Dates: start: 200901, end: 201901
  19. RANITIDINE [Suspect]
     Active Substance: RANITIDINE
     Indication: Dyspepsia
     Dosage: 300 MG, QD
     Route: 065
     Dates: start: 200901, end: 201901
  20. RANITIDINE [Suspect]
     Active Substance: RANITIDINE
     Dosage: 150 MG, 2-4 TIMES A DAY
     Route: 065
     Dates: start: 200901, end: 201901
  21. RANITIDINE [Suspect]
     Active Substance: RANITIDINE
     Dosage: 150 MG, 7 DAYS A WEEK
     Route: 065
     Dates: start: 200901, end: 201901

REACTIONS (1)
  - Hepatic cancer [Unknown]
